FAERS Safety Report 25485765 (Version 1)
Quarter: 2025Q2

REPORT INFORMATION
  Report Type: Spontaneous
  Country: JP (occurrence: JP)
  Receive Date: 20250626
  Receipt Date: 20250626
  Transmission Date: 20250717
  Serious: Yes (Other)
  Sender: MERCK SHARP & DOHME LLC
  Company Number: JP-009507513-2298247

PATIENT
  Age: 59 Year
  Sex: Male

DRUGS (1)
  1. KEYTRUDA [Suspect]
     Active Substance: PEMBROLIZUMAB
     Indication: Non-small cell lung cancer
     Route: 042

REACTIONS (4)
  - Renal impairment [Unknown]
  - Therapy partial responder [Unknown]
  - Immune-mediated dermatitis [Recovering/Resolving]
  - Immune-mediated hepatic disorder [Recovering/Resolving]
